FAERS Safety Report 5515025-2 (Version None)
Quarter: 2007Q4

REPORT INFORMATION
  Report Type: 
  Country: None (occurrence: None)
  Receive Date: 20071113
  Receipt Date: 20061120
  Transmission Date: 20080405
  Serious: No
  Sender: FDA-Public Use
  Company Number: A0628127A

PATIENT
  Sex: Female

DRUGS (13)
  1. COREG [Suspect]
     Dosage: 3.125MG TWICE PER DAY
     Route: 048
  2. ACCUPRIL [Concomitant]
  3. LASIX [Concomitant]
  4. LIPITOR [Concomitant]
  5. DIOVAN [Concomitant]
  6. AMIODARONE HCL [Concomitant]
  7. CARDURA [Concomitant]
  8. FOLIC ACID [Concomitant]
  9. ASPIRIN [Concomitant]
  10. POTASSIUM CHLORIDE [Concomitant]
  11. MULTI-VITAMIN [Concomitant]
  12. PRILOSEC [Concomitant]
  13. NEXIUM [Concomitant]

REACTIONS (2)
  - DYSPNOEA [None]
  - WEIGHT INCREASED [None]
